FAERS Safety Report 8583021-7 (Version None)
Quarter: 2012Q3

REPORT INFORMATION
  Report Type: 
  Country: None (occurrence: None)
  Receive Date: 20120809
  Receipt Date: 20120730
  Transmission Date: 20120928
  Serious: Yes (Hospitalization)
  Sender: FDA-Public Use
  Company Number: FR-ELI_LILLY_AND_COMPANY-FR201207008770

PATIENT
  Sex: Male

DRUGS (8)
  1. DEXERYL [Concomitant]
  2. LEUCOVORIN CALCIUM [Concomitant]
     Dosage: UNK
     Dates: start: 20110701
  3. CARBOPLATIN [Concomitant]
     Dosage: UNK
     Dates: start: 20110727, end: 20110924
  4. BEPANTHENE [Concomitant]
     Dosage: UNK, UNKNOWN
     Route: 065
  5. ALIMTA [Suspect]
     Indication: METASTATIC BRONCHIAL CARCINOMA
     Dosage: 750 MG, OTHER
     Route: 042
     Dates: start: 20110727, end: 20120419
  6. LERCANIDIPINE [Concomitant]
     Dosage: UNK
     Dates: start: 20120301
  7. VITAMIN B-12 [Concomitant]
     Dosage: UNK, OTHER
     Dates: start: 20110701
  8. AMLODIPINE [Concomitant]
     Dosage: UNK, UNKNOWN
     Route: 065
     Dates: end: 20120301

REACTIONS (5)
  - RASH [None]
  - XEROSIS [None]
  - ERYSIPELAS [None]
  - OEDEMA PERIPHERAL [None]
  - ASTHENIA [None]
